FAERS Safety Report 7205786-9 (Version None)
Quarter: 2010Q4

REPORT INFORMATION
  Report Type: 
  Country: None (occurrence: None)
  Receive Date: 20101231
  Receipt Date: 20101227
  Transmission Date: 20110411
  Serious: Yes (Hospitalization)
  Sender: FDA-Public Use
  Company Number: FR-PFIZER INC-2010179490

PATIENT
  Age: 87 Year
  Sex: Male

DRUGS (5)
  1. DOXORUBICIN HCL [Suspect]
     Indication: HODGKIN'S DISEASE
     Dosage: ONE SINGLE DOSE
     Route: 042
     Dates: start: 20101201
  2. BLEOMYCIN [Suspect]
     Indication: HODGKIN'S DISEASE
     Dosage: ONE SINGLE DOSE
     Route: 042
     Dates: start: 20101201
  3. VINBLASTINE [Suspect]
     Indication: HODGKIN'S DISEASE
     Dosage: ONE SINGLE DOSE
     Route: 042
     Dates: start: 20101201
  4. DETICENE [Suspect]
     Indication: HODGKIN'S DISEASE
     Dosage: ONE SINGLE DOSE
     Route: 042
     Dates: start: 20101201
  5. RITUXIMAB [Suspect]
     Indication: HODGKIN'S DISEASE
     Dosage: ONE SINGLE DOSE
     Route: 042
     Dates: start: 20101201

REACTIONS (8)
  - ALANINE AMINOTRANSFERASE INCREASED [None]
  - ASPARTATE AMINOTRANSFERASE INCREASED [None]
  - CHILLS [None]
  - CONJUNCTIVITIS [None]
  - HYPOTENSION [None]
  - PYREXIA [None]
  - RASH GENERALISED [None]
  - RASH MACULO-PAPULAR [None]
